FAERS Safety Report 21254234 (Version 2)
Quarter: 2022Q3

REPORT INFORMATION
  Report Type: Spontaneous
  Country: GB (occurrence: GB)
  Receive Date: 20220825
  Receipt Date: 20220912
  Transmission Date: 20221026
  Serious: Yes (Hospitalization)
  Sender: FDA-Public Use
  Company Number: GB-MYLANLABS-2022M1088609

PATIENT
  Sex: Male

DRUGS (1)
  1. CLOZARIL [Suspect]
     Active Substance: CLOZAPINE
     Indication: Schizophrenia
     Dosage: UNK
     Route: 048
     Dates: start: 20050124, end: 20220831

REACTIONS (3)
  - Lower respiratory tract infection [Recovering/Resolving]
  - Product dose omission issue [Unknown]
  - Increased bronchial secretion [Recovering/Resolving]

NARRATIVE: CASE EVENT DATE: 20220819
